FAERS Safety Report 12083128 (Version 2)
Quarter: 2016Q1

REPORT INFORMATION
  Report Type: Spontaneous
  Country: TR (occurrence: TR)
  Receive Date: 20160217
  Receipt Date: 20160218
  Transmission Date: 20160526
  Serious: Yes (Hospitalization, Other)
  Sender: FDA-Public Use
  Company Number: TR-TWI PHARMACEUTICAL, INC-2016SCTW000004

PATIENT

DRUGS (1)
  1. DONEPEZIL HYDROCHLORIDE. [Suspect]
     Active Substance: DONEPEZIL HYDROCHLORIDE
     Indication: DEMENTIA
     Dosage: UNK UNK, UNKNOWN
     Route: 065

REACTIONS (4)
  - Presyncope [None]
  - Blood pressure decreased [Unknown]
  - Wandering pacemaker [Recovered/Resolved]
  - Dizziness [None]
